FAERS Safety Report 8902303 (Version 2)
Quarter: 2012Q4

REPORT INFORMATION
  Report Type: 
  Country: BR (occurrence: BR)
  Receive Date: 20121112
  Receipt Date: 20121121
  Transmission Date: 20130627
  Serious: Yes (Other)
  Sender: FDA-Public Use
  Company Number: BR-JNJFOC-20121103903

PATIENT
  Age: 83 Year
  Sex: Female
  Weight: 63 kg

DRUGS (13)
  1. XARELTO [Suspect]
     Indication: CEREBROVASCULAR ACCIDENT PROPHYLAXIS
     Route: 048
     Dates: start: 20120921
  2. XARELTO [Suspect]
     Indication: ATRIAL FIBRILLATION
     Route: 048
     Dates: start: 20120921
  3. BENICAR [Concomitant]
     Route: 065
  4. SELOZOK [Concomitant]
     Route: 065
  5. LASIX [Concomitant]
     Route: 065
  6. PROLOPA [Concomitant]
     Route: 065
     Dates: start: 20120921
  7. AN UNKNOWN MEDICATION [Concomitant]
     Route: 065
     Dates: start: 20120901
  8. NEXIUM [Concomitant]
     Route: 065
  9. LIPOSTAT [Concomitant]
     Route: 065
  10. RIVOTRIL [Concomitant]
     Route: 065
  11. AN UNKNOWN MEDICATION [Concomitant]
     Route: 065
  12. TANDRILAX [Concomitant]
     Route: 065
  13. HERBAL PREPARATION [Concomitant]
     Route: 065

REACTIONS (2)
  - Haemorrhagic vasculitis [Recovering/Resolving]
  - Underdose [Unknown]
